FAERS Safety Report 17580848 (Version 3)
Quarter: 2020Q1

REPORT INFORMATION
  Report Type: Spontaneous
  Country: JP (occurrence: JP)
  Receive Date: 20200325
  Receipt Date: 20200326
  Transmission Date: 20200409
  Serious: Yes (Life-Threatening, Hospitalization)
  Sender: FDA-Public Use
  Company Number: JP-FERRINGPH-2019FE07768

PATIENT
  Age: 63 Year
  Sex: Female
  Weight: 70 kg

DRUGS (13)
  1. AMLODIPINE [Concomitant]
     Active Substance: AMLODIPINE BESYLATE
  2. TELMISARTAN. [Concomitant]
     Active Substance: TELMISARTAN
  3. DESMOPRESSIN KYOWA [Suspect]
     Active Substance: DESMOPRESSIN
     Dosage: 2.5 UG BEFORE BREAKFAST,  5 UG BEFORE DINNER
     Route: 045
  4. DESMOPRESSIN KYOWA [Suspect]
     Active Substance: DESMOPRESSIN
     Indication: DIABETES INSIPIDUS
     Dosage: ADJUSTED ACCORDING TO URINE OUTPUT
     Route: 045
     Dates: start: 20181001, end: 20181018
  5. DESMOPRESSIN KYOWA [Suspect]
     Active Substance: DESMOPRESSIN
     Dosage: 5 UG AT 07:00 AND 7.5 AT 21:00
     Route: 045
     Dates: start: 20181023, end: 20181024
  6. DESMOPRESSIN KYOWA [Suspect]
     Active Substance: DESMOPRESSIN
     Dosage: 5 UG AT 07:00, 7,5 AT 21:00
     Route: 045
     Dates: start: 20181026
  7. ATORVASTATIN [Concomitant]
     Active Substance: ATORVASTATIN
  8. DESMOPRESSIN KYOWA [Suspect]
     Active Substance: DESMOPRESSIN
     Dosage: 10 UG, 4 TIMES DAILY
     Route: 045
     Dates: start: 20181019, end: 20181021
  9. DESMOPRESSIN KYOWA [Suspect]
     Active Substance: DESMOPRESSIN
     Dosage: 12.5 UG
     Route: 045
     Dates: start: 20191030
  10. DESMOPRESSIN KYOWA [Suspect]
     Active Substance: DESMOPRESSIN
     Dosage: 7.5 UG AT 07:00 AND 14.00, 5 UG AT 21:00
     Route: 045
     Dates: start: 20181022, end: 20181022
  11. MAGNESIUM OXIDE. [Concomitant]
     Active Substance: MAGNESIUM OXIDE
  12. DESMOPRESSIN KYOWA [Suspect]
     Active Substance: DESMOPRESSIN
     Dosage: 2.5 UG, AT 07:00 AND 21:00
     Route: 045
     Dates: start: 20181025, end: 20181025
  13. INSULIN GLARGINE BS [Suspect]
     Active Substance: INSULIN GLARGINE
     Indication: PRODUCT USED FOR UNKNOWN INDICATION
     Dosage: 2 IU, 1 TIME DAILY (EVENING)
     Route: 065

REACTIONS (3)
  - Hyperglycaemic hyperosmolar nonketotic syndrome [Recovered/Resolved]
  - Intentional dose omission [Recovered/Resolved]
  - Hyponatraemia [Recovered/Resolved]

NARRATIVE: CASE EVENT DATE: 20190330
